FAERS Safety Report 19064120 (Version 1)
Quarter: 2021Q1

REPORT INFORMATION
  Report Type: Spontaneous
  Country: US (occurrence: US)
  Receive Date: 20210326
  Receipt Date: 20210326
  Transmission Date: 20210420
  Serious: Yes (Other)
  Sender: FDA-Public Use
  Company Number: US-PFIZER INC-2020232958

PATIENT
  Age: 90 Year
  Sex: Male

DRUGS (1)
  1. ARTHROTEC [Suspect]
     Active Substance: DICLOFENAC SODIUM\MISOPROSTOL
     Dosage: 75 MG/200 MG

REACTIONS (5)
  - Anaemia [Unknown]
  - Aortic valve incompetence [Unknown]
  - Depression [Unknown]
  - Dementia [Unknown]
  - Arthritis [Unknown]
